FAERS Safety Report 4635733-5 (Version None)
Quarter: 2005Q2

REPORT INFORMATION
  Report Type: 
  Country: None (occurrence: None)
  Receive Date: 20050413
  Receipt Date: 20050405
  Transmission Date: 20051028
  Serious: Yes (Hospitalization)
  Sender: FDA-Public Use
  Company Number: 200511401BCC

PATIENT
  Age: 52 Year
  Sex: Male
  Weight: 83.9154 kg

DRUGS (3)
  1. ASPIRIN [Suspect]
     Indication: PAIN
     Dosage: ORAL
     Route: 048
  2. ASPIRIN [Suspect]
     Indication: ROAD TRAFFIC ACCIDENT
     Dosage: ORAL
     Route: 048
  3. PROTONIX [Concomitant]

REACTIONS (2)
  - GASTRIC ULCER HAEMORRHAGE [None]
  - INTESTINAL OBSTRUCTION [None]
